FAERS Safety Report 8962635 (Version 1)
Quarter: 2012Q4

REPORT INFORMATION
  Report Type: Spontaneous
  Country: US (occurrence: None)
  Receive Date: 20121211
  Receipt Date: 20121211
  Transmission Date: 20130627
  Serious: Yes (Hospitalization)
  Sender: FDA-Public Use
  Company Number: None

PATIENT
  Age: 67 Year
  Sex: Male
  Weight: 75.5 kg

DRUGS (6)
  1. SOLIRIS [Suspect]
     Indication: GRAFT REJECTION
     Dosage: 9/27, 9/28, 9/30-10-07, 10/11, 10/18/2012; 1200mg once IV
     Route: 042
  2. SOLIRIS [Suspect]
     Indication: PROPHYLAXIS
     Dosage: 9/27, 9/28, 9/30-10-07, 10/11, 10/18/2012; 1200mg once IV
     Route: 042
  3. SOLIRIS [Suspect]
     Indication: GRAFT REJECTION
     Dosage: 900 mg (5x^s)
600 mg (8x^s)
     Route: 042
     Dates: start: 20121018
  4. SOLIRIS [Suspect]
     Indication: PROPHYLAXIS
     Dosage: 900 mg (5x^s)
600 mg (8x^s)
     Route: 042
     Dates: start: 20121018
  5. SOLIRIS [Suspect]
     Indication: GRAFT REJECTION
     Route: 042
  6. SOLIRIS [Suspect]
     Indication: PROPHYLAXIS
     Route: 042

REACTIONS (10)
  - Wound drainage [None]
  - Deep vein thrombosis [None]
  - Incision site complication [None]
  - Staphylococcus test positive [None]
  - Escherichia test positive [None]
  - Enterococcus test positive [None]
  - Ileus [None]
  - Anaemia [None]
  - Oncocytoma [None]
  - Urinary bladder polyp [None]
